FAERS Safety Report 7789232-2 (Version None)
Quarter: 2011Q3

REPORT INFORMATION
  Report Type: 
  Country: None (occurrence: None)
  Receive Date: 20110930
  Receipt Date: 20110926
  Transmission Date: 20111222
  Serious: Yes (Other)
  Sender: FDA-Public Use
  Company Number: US-AMGEN-USASP2011049515

PATIENT
  Age: 56 Year
  Sex: Female

DRUGS (1)
  1. ENBREL [Suspect]
     Indication: PSORIASIS
     Dosage: 50 MG, QWK
     Dates: start: 20100419

REACTIONS (4)
  - OEDEMA PERIPHERAL [None]
  - ERYTHEMA [None]
  - BLOOD PRESSURE INCREASED [None]
  - ORTHOPNOEA [None]
